FAERS Safety Report 7217947-3 (Version None)
Quarter: 2011Q1

REPORT INFORMATION
  Report Type: 
  Country: None (occurrence: None)
  Receive Date: 20110110
  Receipt Date: 20110104
  Transmission Date: 20110831
  Serious: Yes (Death)
  Sender: FDA-Public Use
  Company Number: A0900409A

PATIENT
  Age: 74 Year
  Sex: Female

DRUGS (3)
  1. DYAZIDE [Suspect]
     Indication: CARDIAC FAILURE
     Dosage: 1CAP PER DAY
     Route: 048
     Dates: start: 20050823, end: 20100525
  2. LANOXIN [Suspect]
     Indication: CARDIAC FAILURE
     Dosage: 125MCG PER DAY
     Route: 048
     Dates: start: 20061003, end: 20100525
  3. TYKERB [Suspect]
     Indication: BREAST CANCER
     Dosage: 1000MG UNKNOWN
     Route: 048
     Dates: start: 20080314, end: 20100525

REACTIONS (5)
  - CARDIAC FAILURE [None]
  - DRUG INEFFECTIVE [None]
  - METASTASES TO CENTRAL NERVOUS SYSTEM [None]
  - BREAST CANCER [None]
  - METASTASES TO BONE [None]
